FAERS Safety Report 5868706-5 (Version None)
Quarter: 2008Q3

REPORT INFORMATION
  Report Type: 
  Country: None (occurrence: None)
  Receive Date: 20080903
  Receipt Date: 20080902
  Transmission Date: 20090109
  Serious: Yes (Death, Hospitalization)
  Sender: FDA-Public Use
  Company Number: PHEH1995US03270

PATIENT
  Sex: Male
  Weight: 82.6 kg

DRUGS (9)
  1. NEORAL [Suspect]
     Route: 048
     Dates: start: 19950824, end: 19950831
  2. PREDNISONE TAB [Concomitant]
     Route: 048
  3. ACYCLOVIR [Concomitant]
     Route: 048
  4. DOPAMINE HCL [Concomitant]
     Dosage: UNSPECIFIED
     Dates: start: 19950901
  5. PEPCID [Concomitant]
     Dates: start: 19950801
  6. ASPIRIN [Concomitant]
     Route: 048
  7. FLAGYL [Concomitant]
     Dates: start: 19950901
  8. AZTREONAM (AZTREONAM) [Concomitant]
     Route: 065
     Dates: start: 19950901
  9. IMURAN [Concomitant]

REACTIONS (10)
  - ACUTE RESPIRATORY DISTRESS SYNDROME [None]
  - ARTERIAL THROMBOSIS [None]
  - COMA [None]
  - DEATH [None]
  - HEPATIC FAILURE [None]
  - HYPOTENSION [None]
  - INFECTION [None]
  - RENAL FAILURE ACUTE [None]
  - RESPIRATORY FAILURE [None]
  - SEPSIS [None]
